FAERS Safety Report 9318251 (Version 4)
Quarter: 2013Q3

REPORT INFORMATION
  Report Type: Report from Study
  Country: US (occurrence: US)
  Receive Date: 20130530
  Receipt Date: 20130809
  Transmission Date: 20140515
  Serious: Yes (Death, Hospitalization)
  Sender: FDA-Public Use
  Company Number: US-ACTELION-A-NJ2012-76103

PATIENT
  Age: 12 Month
  Sex: Male

DRUGS (2)
  1. TRACLEER [Suspect]
     Indication: PULMONARY ARTERIAL HYPERTENSION
     Dosage: UNK
     Route: 048
     Dates: end: 20130711
  2. SILDENAFIL [Concomitant]

REACTIONS (13)
  - Cardio-respiratory arrest [Fatal]
  - Increased bronchial secretion [Unknown]
  - Tracheostomy malfunction [Unknown]
  - Dyspnoea [Unknown]
  - Pneumonia [Unknown]
  - Acute respiratory distress syndrome [Recovering/Resolving]
  - Mechanical ventilation [Recovering/Resolving]
  - Pulmonary vein stenosis [Recovering/Resolving]
  - Concomitant disease aggravated [Recovering/Resolving]
  - General physical health deterioration [Unknown]
  - Heart rate decreased [Unknown]
  - Oxygen saturation decreased [Unknown]
  - Nocturnal dyspnoea [Unknown]
